FAERS Safety Report 5670704-1 (Version None)
Quarter: 2008Q1

REPORT INFORMATION
  Report Type: 
  Country: None (occurrence: None)
  Receive Date: 20080318
  Receipt Date: 20080317
  Transmission Date: 20080703
  Serious: Yes (Other)
  Sender: FDA-Public Use
  Company Number: A0524796A

PATIENT
  Age: 42 Year
  Sex: Female
  Weight: 57.7 kg

DRUGS (2)
  1. NICODERM CQ [Suspect]
     Dosage: 7MG PER DAY
     Route: 062
     Dates: start: 20040101, end: 20040101
  2. ESTROGEN [Suspect]
     Route: 062

REACTIONS (8)
  - ABDOMINAL PAIN UPPER [None]
  - ADNEXA UTERI PAIN [None]
  - BILIARY TRACT DISORDER [None]
  - GASTROINTESTINAL PAIN [None]
  - HEPATIC ENZYME INCREASED [None]
  - INTENTIONAL DRUG MISUSE [None]
  - OVARIAN CYST [None]
  - PAIN [None]
